FAERS Safety Report 9532750 (Version 1)
Quarter: 2013Q2

REPORT INFORMATION
  Report Type: Spontaneous
  Country: FR (occurrence: None)
  Receive Date: 20130403
  Receipt Date: 20130403
  Transmission Date: 20140414
  Serious: Yes (Hospitalization)
  Sender: FDA-Public Use
  Company Number: US-2012-11601

PATIENT
  Age: 13 Year
  Sex: Male

DRUGS (2)
  1. BUSULFEX [Suspect]
     Indication: TRANSPLANT
     Route: 042
     Dates: start: 20090126
  2. ALKERAN [Suspect]
     Indication: TRANSPLANT
     Route: 042
     Dates: start: 20090126

REACTIONS (1)
  - Interstitial lung disease [None]
